FAERS Safety Report 7516269-0 (Version None)
Quarter: 2011Q2

REPORT INFORMATION
  Report Type: 
  Country: None (occurrence: None)
  Receive Date: 20110601
  Receipt Date: 20110518
  Transmission Date: 20111010
  Serious: Yes (Other)
  Sender: FDA-Public Use
  Company Number: PHHY2011FR42441

PATIENT
  Sex: Female

DRUGS (4)
  1. CARLIN [Concomitant]
     Dosage: 75/30 MCG
  2. ACETAMINOPHEN [Concomitant]
     Dosage: 2 DF, QD
  3. NEORAL [Suspect]
     Indication: PSORIASIS
     Dosage: 250 MG, QD
     Dates: end: 20110504
  4. ORAL CONTRACEPTIVE NOS [Concomitant]
     Dosage: UNK
     Route: 048

REACTIONS (11)
  - HEPATITIS [None]
  - DYSAESTHESIA [None]
  - VOMITING [None]
  - PSORIASIS [None]
  - JAUNDICE [None]
  - ASTHENIA [None]
  - FATIGUE [None]
  - DECREASED APPETITE [None]
  - DYSPEPSIA [None]
  - MUSCULOSKELETAL STIFFNESS [None]
  - NAUSEA [None]
